FAERS Safety Report 22133332 (Version 1)
Quarter: 2023Q1

REPORT INFORMATION
  Report Type: Spontaneous
  Country: US (occurrence: US)
  Receive Date: 20230324
  Receipt Date: 20230324
  Transmission Date: 20230417
  Serious: No
  Sender: FDA-Public Use
  Company Number: US-AMGEN-USASP2023050530

PATIENT
  Age: 42 Year
  Sex: Male

DRUGS (7)
  1. OTEZLA [Suspect]
     Active Substance: APREMILAST
     Indication: Product used for unknown indication
     Dosage: 30 MILLIGRAM, BID
     Route: 065
     Dates: start: 202303, end: 202303
  2. OTEZLA [Suspect]
     Active Substance: APREMILAST
     Dosage: 30 MILLIGRAM, QD
     Route: 065
     Dates: start: 202303
  3. BETAMETHASONE [Concomitant]
     Active Substance: BETAMETHASONE
     Dosage: 0.05 PERCENT
  4. DESVENLAFAXINE [Concomitant]
     Active Substance: DESVENLAFAXINE
     Dosage: 50 MILLIGRAM
  5. DEXTROAMPHETAMINE [Concomitant]
     Active Substance: DEXTROAMPHETAMINE
     Dosage: 20 MILLIGRAM
  6. ESZOPICLONE [Concomitant]
     Active Substance: ESZOPICLONE
     Dosage: 3 MILLIGRAM
  7. TACROLIMUS [Concomitant]
     Active Substance: TACROLIMUS
     Dosage: 0.1 PERCENT

REACTIONS (4)
  - Anxiety [Not Recovered/Not Resolved]
  - Sluggishness [Not Recovered/Not Resolved]
  - Dizziness [Not Recovered/Not Resolved]
  - Diarrhoea [Not Recovered/Not Resolved]

NARRATIVE: CASE EVENT DATE: 20230301
